FAERS Safety Report 5702435-3 (Version None)
Quarter: 2008Q2

REPORT INFORMATION
  Report Type: 
  Country: None (occurrence: None)
  Receive Date: 20080411
  Receipt Date: 20080404
  Transmission Date: 20081010
  Serious: Yes (Death, Other)
  Sender: FDA-Public Use
  Company Number: DE-BRISTOL-MYERS SQUIBB COMPANY-14138309

PATIENT
  Age: 72 Year
  Sex: Male

DRUGS (1)
  1. SPRYCEL [Suspect]
     Indication: CHRONIC MYELOID LEUKAEMIA
     Dates: start: 20080101

REACTIONS (6)
  - BLAST CELL CRISIS [None]
  - CARDIAC FAILURE [None]
  - HYPERTENSION [None]
  - MALIGNANT NEOPLASM PROGRESSION [None]
  - PLEURAL EFFUSION [None]
  - PULMONARY OEDEMA [None]
